FAERS Safety Report 7935748-5 (Version None)
Quarter: 2011Q4

REPORT INFORMATION
  Report Type: 
  Country: None (occurrence: None)
  Receive Date: 20111123
  Receipt Date: 20111117
  Transmission Date: 20120403
  Serious: Yes (Death)
  Sender: FDA-Public Use
  Company Number: PHHY2011CA88732

PATIENT
  Sex: Female

DRUGS (11)
  1. LIPITOR [Concomitant]
     Dosage: 1 DF, QD
     Dates: start: 20110207
  2. GLYCERIN SUPPOSITORIES [Concomitant]
     Dosage: 2.7 G,Q3 DAYS PRN
     Dates: start: 20110207
  3. ACETAMINOPHEN [Concomitant]
     Dosage: 2 DF, UNK
     Route: 048
     Dates: start: 20110207
  4. MONOCOR [Concomitant]
     Dosage: 1 DF, QD
     Route: 048
     Dates: start: 20110207
  5. NITROLINGUAL [Concomitant]
     Dosage: UNK UKN, UNK
     Dates: start: 20110207
  6. CLOZARIL [Suspect]
     Dosage: 2 DF, QHS (50 MG)
     Dates: start: 20110207
  7. ASPIRIN [Concomitant]
     Dosage: 80 MG, UNK
     Dates: start: 20110207
  8. FERROUS SULFATE TAB [Concomitant]
     Dosage: 1 DF, QD
     Dates: start: 20110207
  9. PLAVIX [Concomitant]
     Dosage: 1 DF, QD
     Route: 048
     Dates: start: 20110207
  10. CLOZARIL [Suspect]
     Indication: SCHIZOPHRENIA
     Dosage: 100 MG, QHS
     Route: 048
     Dates: start: 20091201
  11. FLOVENT [Concomitant]
     Dosage: UNK UKN, BID
     Dates: start: 20110207

REACTIONS (1)
  - DEATH [None]
